FAERS Safety Report 12998514 (Version 1)
Quarter: 2016Q4

REPORT INFORMATION
  Report Type: Spontaneous
  Country: US (occurrence: US)
  Receive Date: 20161203
  Receipt Date: 20161203
  Transmission Date: 20170207
  Serious: Yes (Other)
  Sender: FDA-Public Use
  Company Number: None

PATIENT
  Age: 62 Year
  Sex: Female
  Weight: 87.3 kg

DRUGS (10)
  1. CENTRUM VIT [Concomitant]
     Active Substance: VITAMINS
  2. PLAVI [Concomitant]
  3. MYRBETRIQ [Suspect]
     Active Substance: MIRABEGRON
     Indication: BLADDER DISORDER
     Dosage: ?          QUANTITY:1 TABLET(S);?
     Route: 048
     Dates: start: 20161108, end: 20161124
  4. COQ10 [Concomitant]
     Active Substance: UBIDECARENONE
  5. ATACAND [Concomitant]
     Active Substance: CANDESARTAN CILEXETIL
  6. BABY ASPIRIN [Concomitant]
     Active Substance: ASPIRIN
  7. MAXZIDE [Concomitant]
     Active Substance: HYDROCHLOROTHIAZIDE\TRIAMTERENE
  8. KRILL [Concomitant]
  9. VITAMIN D [Concomitant]
     Active Substance: CHOLECALCIFEROL
  10. PRAVASTATIN. [Concomitant]
     Active Substance: PRAVASTATIN

REACTIONS (8)
  - Waist circumference increased [None]
  - Pollakiuria [None]
  - Blood pressure increased [None]
  - Abdominal distension [None]
  - Migraine [None]
  - Fluid retention [None]
  - Confusional state [None]
  - Dizziness [None]

NARRATIVE: CASE EVENT DATE: 20161125
